FAERS Safety Report 7832617-6 (Version None)
Quarter: 2011Q4

REPORT INFORMATION
  Report Type: 
  Country: None (occurrence: None)
  Receive Date: 20111024
  Receipt Date: 20111014
  Transmission Date: 20120403
  Serious: No
  Sender: FDA-Public Use
  Company Number: US-BIOGENIDEC-2011BI013298

PATIENT
  Age: 40 Year
  Sex: Female

DRUGS (2)
  1. AVONEX [Concomitant]
     Indication: MULTIPLE SCLEROSIS
     Route: 030
  2. TYSABRI [Suspect]
     Indication: MULTIPLE SCLEROSIS
     Route: 042
     Dates: start: 20100924

REACTIONS (9)
  - ASTHENIA [None]
  - BLOOD TEST ABNORMAL [None]
  - HEMIPLEGIA [None]
  - NAUSEA [None]
  - FATIGUE [None]
  - GAIT DISTURBANCE [None]
  - OPTIC NEURITIS [None]
  - HEADACHE [None]
  - BALANCE DISORDER [None]
